FAERS Safety Report 18401243 (Version 7)
Quarter: 2021Q1

REPORT INFORMATION
  Report Type: Spontaneous
  Country: US (occurrence: US)
  Receive Date: 20201019
  Receipt Date: 20210127
  Transmission Date: 20210419
  Serious: Yes (Death, Hospitalization, Disabling, Other)
  Sender: FDA-Public Use
  Company Number: US-MALLINCKRODT-T202004043

PATIENT
  Age: 85 Year
  Sex: Female
  Weight: 64 kg

DRUGS (4)
  1. H.P. ACTHAR [Suspect]
     Active Substance: CORTICOTROPIN
     Dosage: 80 UNITS, TWICE WEEKLY
     Route: 058
     Dates: start: 202008, end: 2020
  2. H.P. ACTHAR [Suspect]
     Active Substance: CORTICOTROPIN
     Indication: NEPHROTIC SYNDROME
     Dosage: 40 UNITS, TWICE WEEKLY FOR 2 WEEKS
     Route: 058
     Dates: start: 20200720, end: 202008
  3. WARFARIN [Suspect]
     Active Substance: WARFARIN
     Indication: PRODUCT USED FOR UNKNOWN INDICATION
     Dosage: UNK
     Route: 065
  4. H.P. ACTHAR [Suspect]
     Active Substance: CORTICOTROPIN
     Dosage: 80 MILLIGRAM, TWICE A WEEK
     Route: 058
     Dates: start: 2020

REACTIONS (22)
  - Pulmonary oedema [Not Recovered/Not Resolved]
  - Gait disturbance [Not Recovered/Not Resolved]
  - Atrial fibrillation [Not Recovered/Not Resolved]
  - Asthenia [Not Recovered/Not Resolved]
  - Mouth haemorrhage [Unknown]
  - Fall [Recovering/Resolving]
  - International normalised ratio increased [Unknown]
  - Cardiac failure congestive [Not Recovered/Not Resolved]
  - Swelling face [Unknown]
  - Peripheral swelling [Unknown]
  - Death [Fatal]
  - Stenosis [Not Recovered/Not Resolved]
  - Skin discolouration [Unknown]
  - Wound haemorrhage [Recovered/Resolved]
  - Decreased appetite [Recovering/Resolving]
  - Chronic kidney disease [Recovering/Resolving]
  - Contusion [Recovering/Resolving]
  - Oral bacterial infection [Unknown]
  - Oesophagitis bacterial [Unknown]
  - Injection site bruising [Unknown]
  - Skin laceration [Unknown]
  - Pleural effusion [Unknown]

NARRATIVE: CASE EVENT DATE: 2020
